FAERS Safety Report 4867321-X (Version None)
Quarter: 2005Q4

REPORT INFORMATION
  Report Type: 
  Country: None (occurrence: None)
  Receive Date: 20051222
  Receipt Date: 20051206
  Transmission Date: 20060501
  Serious: Yes (Other)
  Sender: FDA-Public Use
  Company Number: US200512001011

PATIENT
  Age: 77 Year
  Sex: Female

DRUGS (1)
  1. XIGRIS [Suspect]
     Indication: KLEBSIELLA SEPSIS
     Dates: start: 20051109, end: 20051112

REACTIONS (1)
  - BONE MARROW FAILURE [None]
